FAERS Safety Report 6100046-1 (Version None)
Quarter: 2009Q1

REPORT INFORMATION
  Report Type: 
  Country: None (occurrence: None)
  Receive Date: 20090303
  Receipt Date: 20090224
  Transmission Date: 20090719
  Serious: Yes (Life-Threatening)
  Sender: FDA-Public Use
  Company Number: B0561353A

PATIENT
  Age: 23 Year
  Sex: Male
  Weight: 65 kg

DRUGS (4)
  1. AUGMENTIN '125' [Suspect]
     Indication: PROPHYLAXIS
     Route: 042
     Dates: start: 20081202
  2. PROPOFOL [Concomitant]
     Route: 042
     Dates: start: 20081202, end: 20081202
  3. FENTANYL [Concomitant]
     Route: 042
     Dates: start: 20081202, end: 20081202
  4. BUPIVACAINE [Concomitant]
     Route: 030
     Dates: start: 20081202, end: 20081202

REACTIONS (3)
  - ANAPHYLACTIC REACTION [None]
  - BRONCHOSPASM [None]
  - CIRCULATORY COLLAPSE [None]
